FAERS Safety Report 21438881 (Version 1)
Quarter: 2022Q4

REPORT INFORMATION
  Report Type: Spontaneous
  Country: US (occurrence: None)
  Receive Date: 20221007
  Receipt Date: 20221007
  Transmission Date: 20230112
  Serious: Yes (Hospitalization)
  Sender: FDA-Public Use
  Company Number: None

PATIENT
  Age: 59 Year
  Sex: Female

DRUGS (18)
  1. AMBRISENTAN [Suspect]
     Active Substance: AMBRISENTAN
     Indication: Pulmonary hypertension
     Dosage: 5MG QD ORAL
     Route: 048
     Dates: start: 20120724, end: 20221006
  2. LACTULOSE [Concomitant]
     Active Substance: LACTULOSE
  3. ASCORBIC ACID [Concomitant]
     Active Substance: ASCORBIC ACID
  4. Full spectrum B-vitamin C [Concomitant]
  5. NORCO [Concomitant]
     Active Substance: ACETAMINOPHEN\HYDROCODONE BITARTRATE
  6. MS CONTIN [Concomitant]
     Active Substance: MORPHINE SULFATE
  7. HUMULIN N [Concomitant]
     Active Substance: INSULIN HUMAN
  8. HUMULIN R [Concomitant]
     Active Substance: INSULIN HUMAN
  9. LASIX [Concomitant]
     Active Substance: FUROSEMIDE
  10. RENVELA [Concomitant]
     Active Substance: SEVELAMER CARBONATE
  11. RIFAXIMIN [Concomitant]
     Active Substance: RIFAXIMIN
  12. METOCLOPRAMIDE [Concomitant]
     Active Substance: METOCLOPRAMIDE
  13. THIAMINE HYDROCHLORIDE [Concomitant]
     Active Substance: THIAMINE HYDROCHLORIDE
  14. ZINC CHELATED [Concomitant]
  15. OMEPRAZOLE [Concomitant]
     Active Substance: OMEPRAZOLE
  16. MIDODRINE [Concomitant]
     Active Substance: MIDODRINE
  17. ALBUTEROL SULFATE [Concomitant]
     Active Substance: ALBUTEROL SULFATE
  18. VITAMIN B COMPLEX [Concomitant]
     Active Substance: CYANOCOBALAMIN\DEXPANTHENOL\NIACINAMIDE\PYRIDOXINE HYDROCHLORIDE\RIBOFLAVIN 5^-PHOSPHATE SODIUM\THIA

REACTIONS (5)
  - Hepatic encephalopathy [None]
  - Dialysis [None]
  - Hypotension [None]
  - Hospice care [None]
  - Chronic hepatic failure [None]

NARRATIVE: CASE EVENT DATE: 20220930
